FAERS Safety Report 17576451 (Version 1)
Quarter: 2020Q1

REPORT INFORMATION
  Report Type: Spontaneous
  Country: US (occurrence: US)
  Receive Date: 20200318
  Receipt Date: 20200318
  Transmission Date: 20200409
  Serious: Yes (Hospitalization, Other)
  Sender: FDA-Public Use
  Company Number: None

PATIENT
  Sex: Female

DRUGS (25)
  1. CREON [Concomitant]
     Active Substance: PANCRELIPASE AMYLASE\PANCRELIPASE LIPASE\PANCRELIPASE PROTEASE
  2. FUROSEMIDE. [Concomitant]
     Active Substance: FUROSEMIDE
  3. ATORVASTATIN [Concomitant]
     Active Substance: ATORVASTATIN
  4. LISINOPRIL. [Concomitant]
     Active Substance: LISINOPRIL
  5. SODIUM BICAR [Concomitant]
  6. CALCITRIOL. [Concomitant]
     Active Substance: CALCITRIOL
  7. CEPHALEXIN. [Concomitant]
     Active Substance: CEPHALEXIN
  8. NIFEDIPINE. [Concomitant]
     Active Substance: NIFEDIPINE
  9. ONETOUCH DEL MIS PLUS [Concomitant]
  10. ADEMLOG SOLO [Concomitant]
  11. FERROSUL [Concomitant]
  12. PROCRIT [Suspect]
     Active Substance: ERYTHROPOIETIN
     Indication: ANAEMIA
     Dosage: ?          OTHER FREQUENCY:QM;?
     Route: 058
     Dates: start: 20200116
  13. BASAGLAR [Concomitant]
     Active Substance: INSULIN GLARGINE
  14. CIPROFLOXACIN. [Concomitant]
     Active Substance: CIPROFLOXACIN
  15. LEVETIRACETA [Concomitant]
  16. ONETOUCH TES ULTRA [Concomitant]
  17. GABAPENTIN. [Concomitant]
     Active Substance: GABAPENTIN
  18. SUCRALFATE. [Concomitant]
     Active Substance: SUCRALFATE
  19. VITAMIN D [Concomitant]
     Active Substance: VITAMIN D NOS
  20. PROCRIT [Suspect]
     Active Substance: ERYTHROPOIETIN
     Indication: CHRONIC KIDNEY DISEASE
     Dosage: ?          OTHER FREQUENCY:QM;?
     Route: 058
     Dates: start: 20200116
  21. ISOSORB MONO [Concomitant]
     Active Substance: ISOSORBIDE MONONITRATE
  22. METOLAZONE. [Concomitant]
     Active Substance: METOLAZONE
  23. PANTOPRAZOLE [Concomitant]
     Active Substance: PANTOPRAZOLE
  24. PEN NEEDLES MIS [Concomitant]
  25. PHENYTOIN. [Concomitant]
     Active Substance: PHENYTOIN

REACTIONS (3)
  - Dialysis [None]
  - Fistula [None]
  - Infection [None]
